FAERS Safety Report 8180728-0 (Version None)
Quarter: 2012Q1

REPORT INFORMATION
  Report Type: 
  Country: None (occurrence: None)
  Receive Date: 20120229
  Receipt Date: 20110419
  Transmission Date: 20120608
  Serious: Yes (Disabling)
  Sender: FDA-Public Use
  Company Number: QR46037-02

PATIENT
  Age: 86 Year
  Sex: Female

DRUGS (15)
  1. GAMMAPLEX [Suspect]
     Indication: CHRONIC LYMPHOCYTIC LEUKAEMIA
     Dosage: 25G IV
     Route: 042
     Dates: start: 20101012
  2. PENICILLIN [Concomitant]
  3. CODEINE PHOSPHATE [Concomitant]
  4. MORPHINE [Concomitant]
  5. LACTULOSE [Concomitant]
  6. CREON TABLET [Concomitant]
  7. PRAVASTATIN [Concomitant]
  8. GAMMAPLEX [Suspect]
     Indication: BLOOD IMMUNOGLOBULIN A DECREASED
     Dates: start: 20101118
  9. GAMMAPLEX [Suspect]
     Indication: BLOOD IMMUNOGLOBULIN G DECREASED
     Dates: start: 20101118
  10. SCOPOLAMINE [Concomitant]
  11. LEVEMIR [Concomitant]
  12. NOVORAPID [Concomitant]
  13. LOPERAMIDE HCL [Concomitant]
  14. CALCICHEW (D3 FORTE) [Concomitant]
  15. PEPPERMINT TABLETS [Concomitant]

REACTIONS (3)
  - FATIGUE [None]
  - BACK PAIN [None]
  - ACTIVITIES OF DAILY LIVING IMPAIRED [None]
